FAERS Safety Report 8329601-5 (Version None)
Quarter: 2012Q2

REPORT INFORMATION
  Report Type: 
  Country: None (occurrence: None)
  Receive Date: 20120502
  Receipt Date: 20090921
  Transmission Date: 20120825
  Serious: No
  Sender: FDA-Public Use
  Company Number: US-TEVA-2009010530

PATIENT
  Sex: Female
  Weight: 72.186 kg

DRUGS (10)
  1. NUVIGIL [Suspect]
     Indication: SEDATION
  2. TRAZODONE HCL [Concomitant]
  3. ASPIRIN [Concomitant]
  4. FUROSEMIDE [Concomitant]
  5. BENICAR [Concomitant]
  6. TOPROL-XL [Concomitant]
  7. NEXIUM [Concomitant]
  8. NUVIGIL [Suspect]
     Indication: SLEEP APNOEA SYNDROME
     Dosage: 250 MILLIGRAM;
     Route: 048
     Dates: start: 20090901
  9. REMERON [Concomitant]
  10. ALLOPURINOL [Concomitant]

REACTIONS (4)
  - COLD SWEAT [None]
  - CHEST PAIN [None]
  - NERVOUSNESS [None]
  - NAUSEA [None]
